FAERS Safety Report 5242125-7 (Version None)
Quarter: 2007Q1

REPORT INFORMATION
  Report Type: 
  Country: None (occurrence: None)
  Receive Date: 20070212
  Receipt Date: 20070201
  Transmission Date: 20070707
  Serious: Yes (Other)
  Sender: FDA-Public Use
  Company Number: 2007SP002149

PATIENT
  Age: 55 Year
  Sex: Male
  Weight: 90.7194 kg

DRUGS (5)
  1. PEG-INTRON [Suspect]
     Indication: HEPATITIS C
     Dosage: SC
     Route: 058
     Dates: start: 20060624
  2. RIBASPHERE [Suspect]
     Indication: HEPATITIS C
     Dosage: PO
     Route: 048
     Dates: start: 20060624
  3. POTASSIUM CHLORIDE (CON.) [Concomitant]
  4. METOPROLOL TARTRATE (CON.) [Concomitant]
  5. TERAZOSIN HYDROCHLORIDE (CON.) [Concomitant]

REACTIONS (9)
  - DANDRUFF [None]
  - DECREASED APPETITE [None]
  - DRY SKIN [None]
  - EYE PRURITUS [None]
  - HEPATIC NEOPLASM MALIGNANT [None]
  - RED BLOOD CELL COUNT DECREASED [None]
  - VIRAL LOAD INCREASED [None]
  - WEIGHT DECREASED [None]
  - WHITE BLOOD CELL COUNT DECREASED [None]
